FAERS Safety Report 4513481-X (Version None)
Quarter: 2004Q4

REPORT INFORMATION
  Report Type: 
  Country: None (occurrence: None)
  Receive Date: 20041130
  Receipt Date: 20041015
  Transmission Date: 20050328
  Serious: Yes (Hospitalization)
  Sender: FDA-Public Use
  Company Number: 200413213JP

PATIENT
  Age: 50 Year
  Sex: Male

DRUGS (3)
  1. KETEK [Suspect]
     Indication: TONSILLITIS
     Route: 048
     Dates: start: 20040730
  2. MUCODYNE [Concomitant]
     Dosage: DOSE: UNK
  3. LOXONIN [Concomitant]
     Dosage: DOSE: UNK

REACTIONS (3)
  - HEPATIC FUNCTION ABNORMAL [None]
  - RASH [None]
  - RENAL IMPAIRMENT [None]
